FAERS Safety Report 4336954-1 (Version None)
Quarter: 2004Q2

REPORT INFORMATION
  Report Type: 
  Country: None (occurrence: None)
  Receive Date: 20040408
  Receipt Date: 20020329
  Transmission Date: 20050107
  Serious: Yes (Other)
  Sender: FDA-Public Use
  Company Number: KII-2002-0008519

PATIENT
  Age: 33 Year

DRUGS (2)
  1. OXYCONTIN [Suspect]
     Indication: PAIN
  2. ALCOHOL (ETHANOL) [Suspect]

REACTIONS (2)
  - ALCOHOLISM [None]
  - DRUG ABUSER [None]
